APPROVED DRUG PRODUCT: MEGESTROL ACETATE
Active Ingredient: MEGESTROL ACETATE
Strength: 125MG/ML
Dosage Form/Route: SUSPENSION;ORAL
Application: A203139 | Product #001
Applicant: TWI PHARMACEUTICALS INC
Approved: Aug 27, 2014 | RLD: No | RS: Yes | Type: RX